FAERS Safety Report 5624764-4 (Version None)
Quarter: 2008Q1

REPORT INFORMATION
  Report Type: 
  Country: None (occurrence: None)
  Receive Date: 20080208
  Receipt Date: 20080124
  Transmission Date: 20080703
  Serious: Yes (Hospitalization)
  Sender: FDA-Public Use
  Company Number: 2008000167

PATIENT
  Sex: Female

DRUGS (2)
  1. TARCEVA [Suspect]
     Indication: PANCREATIC CARCINOMA
     Dosage: 100 MG, QD, ORAL
     Route: 048
     Dates: start: 20070906, end: 20071101
  2. GEMCITABINE [Suspect]
     Dosage: INTRAVENOUS
     Route: 042

REACTIONS (8)
  - ANAEMIA [None]
  - CLOSTRIDIAL INFECTION [None]
  - DEEP VEIN THROMBOSIS [None]
  - FAECES DISCOLOURED [None]
  - INTERNATIONAL NORMALISED RATIO ABNORMAL [None]
  - NEUROPATHY PERIPHERAL [None]
  - NO THERAPEUTIC RESPONSE [None]
  - PLATELET COUNT DECREASED [None]
